FAERS Safety Report 16032656 (Version 1)
Quarter: 2019Q1

REPORT INFORMATION
  Report Type: Spontaneous
  Country: GR (occurrence: GR)
  Receive Date: 20190305
  Receipt Date: 20190305
  Transmission Date: 20190418
  Serious: Yes (Other)
  Sender: FDA-Public Use
  Company Number: GR-AMGEN-GRCSP2019031735

PATIENT
  Age: 82 Year
  Sex: Female
  Weight: 39 kg

DRUGS (1)
  1. PROLIA [Suspect]
     Active Substance: DENOSUMAB
     Indication: OSTEOPOROSIS
     Dosage: 1 DF, Q6MO
     Route: 058
     Dates: start: 20120326

REACTIONS (1)
  - Anosmia [Recovered/Resolved]

NARRATIVE: CASE EVENT DATE: 20121110
